FAERS Safety Report 7809196-2 (Version None)
Quarter: 2011Q4

REPORT INFORMATION
  Report Type: 
  Country: None (occurrence: None)
  Receive Date: 20111006
  Receipt Date: 20110927
  Transmission Date: 20120403
  Serious: No
  Sender: FDA-Public Use
  Company Number: B0752595A

PATIENT
  Age: 27 Year
  Sex: Female

DRUGS (2)
  1. DIGOXIN [Suspect]
     Indication: TACHYARRHYTHMIA
     Dosage: INTRAMUSCULAR
  2. AMIODARONE HCL [Suspect]
     Dosage: INTRAPERITONEAL
     Route: 033

REACTIONS (3)
  - MATERNAL EXPOSURE DURING PREGNANCY [None]
  - UTERINE CONTRACTIONS DURING PREGNANCY [None]
  - PREMATURE RUPTURE OF MEMBRANES [None]
